FAERS Safety Report 13035832 (Version 3)
Quarter: 2017Q1

REPORT INFORMATION
  Report Type: Report from Study
  Country: ES (occurrence: ES)
  Receive Date: 20161216
  Receipt Date: 20170309
  Transmission Date: 20170428
  Serious: Yes (Other)
  Sender: FDA-Public Use
  Company Number: ES-AMGEN-ESPNI2016176119

PATIENT
  Age: 54 Year
  Sex: Female
  Weight: 96.4 kg

DRUGS (9)
  1. INSULIN [Concomitant]
     Active Substance: INSULIN NOS
     Indication: TYPE 2 DIABETES MELLITUS
     Dosage: UNK
  2. ATORVASTATIN [Concomitant]
     Active Substance: ATORVASTATIN
     Dosage: 20 MG, QD
  3. BLINATUMOMAB [Suspect]
     Active Substance: BLINATUMOMAB
     Dosage: 9 MUG, UNK
     Route: 065
  4. GABAPENTIN. [Concomitant]
     Active Substance: GABAPENTIN
     Dosage: 300 MG, BID
  5. BLINATUMOMAB [Suspect]
     Active Substance: BLINATUMOMAB
     Dosage: 28 MUG, UNK
     Route: 065
  6. OMEPRAZOLE. [Concomitant]
     Active Substance: OMEPRAZOLE
     Dosage: 20 MG, QD
  7. APIDRA [Concomitant]
     Active Substance: INSULIN GLULISINE
     Dosage: 30-32-32 UNITS WITH SUPPLEMENTS/REDUCTIONS
  8. BLINATUMOMAB [Suspect]
     Active Substance: BLINATUMOMAB
     Indication: B PRECURSOR TYPE ACUTE LEUKAEMIA
     Dosage: 28 MUG, UNK
     Route: 065
     Dates: start: 20161207
  9. TOUJEO [Concomitant]
     Active Substance: INSULIN GLARGINE
     Dosage: 78 UNIT, QD

REACTIONS (1)
  - Hepatotoxicity [Recovered/Resolved]

NARRATIVE: CASE EVENT DATE: 20161208
